FAERS Safety Report 6709922-X (Version None)
Quarter: 2010Q2

REPORT INFORMATION
  Report Type: 
  Country: None (occurrence: None)
  Receive Date: 20100504
  Receipt Date: 20100422
  Transmission Date: 20101027
  Serious: No
  Sender: FDA-Public Use
  Company Number: US-JNJFOC-20100406312

PATIENT
  Sex: Female
  Weight: 67.13 kg

DRUGS (4)
  1. FENTANYL CITRATE [Suspect]
     Indication: BACK PAIN
     Route: 062
  2. HYDROMORPHONE HCL [Concomitant]
     Indication: BREAKTHROUGH PAIN
     Route: 065
  3. EVISTA [Concomitant]
     Indication: OSTEOPOROSIS
     Route: 048
  4. PULMICORT [Concomitant]
     Indication: ASTHMA
     Route: 055

REACTIONS (2)
  - DRUG ADMINISTERED AT INAPPROPRIATE SITE [None]
  - WRONG TECHNIQUE IN DRUG USAGE PROCESS [None]
